FAERS Safety Report 10222183 (Version 2)
Quarter: 2014Q3

REPORT INFORMATION
  Report Type: Spontaneous
  Country: US (occurrence: US)
  Receive Date: 20140606
  Receipt Date: 20140702
  Transmission Date: 20150326
  Serious: Yes (Death)
  Sender: FDA-Public Use
  Company Number: US-MALLINCKRODT-T201402397

PATIENT
  Sex: Female

DRUGS (9)
  1. OXYCONTIN [Suspect]
     Active Substance: OXYCODONE HYDROCHLORIDE
     Indication: PAIN
     Dosage: 10 MG, UNK
     Route: 065
     Dates: end: 20120605
  2. DURAGESIC [Concomitant]
     Active Substance: FENTANYL
     Dosage: 100 ?G, Q48
  3. PERCOCET [Concomitant]
     Active Substance: ACETAMINOPHEN\OXYCODONE HYDROCHLORIDE
     Dosage: 10/325 MG
  4. KLOR-CON [Concomitant]
     Active Substance: POTASSIUM CHLORIDE
  5. FENTANYL CITRATE. [Suspect]
     Active Substance: FENTANYL CITRATE
     Indication: CANCER PAIN
     Dosage: 400 ?G, APPROX. BID
     Route: 065
  6. CYMBALTA [Concomitant]
     Active Substance: DULOXETINE HYDROCHLORIDE
     Dosage: 90 MG, QD IN THE AM
     Route: 048
  7. HYDROMORPHONE [Suspect]
     Active Substance: HYDROMORPHONE
     Indication: PAIN
     Dosage: 2 MG, UNK
     Route: 065
     Dates: end: 20120605
  8. PREDNISONE. [Suspect]
     Active Substance: PREDNISONE
  9. VALIUM [Concomitant]
     Active Substance: DIAZEPAM

REACTIONS (5)
  - Periorbital oedema [Unknown]
  - Memory impairment [Unknown]
  - Drug ineffective [Unknown]
  - Dysarthria [Unknown]
  - Death [Fatal]
